FAERS Safety Report 20868378 (Version 1)
Quarter: 2022Q2

REPORT INFORMATION
  Report Type: Spontaneous
  Country: US (occurrence: None)
  Receive Date: 20220524
  Receipt Date: 20220524
  Transmission Date: 20220720
  Serious: No
  Sender: FDA-Public Use
  Company Number: None

PATIENT
  Age: 44 Year
  Sex: Female

DRUGS (8)
  1. PAXLOVID [Suspect]
     Active Substance: NIRMATRELVIR\RITONAVIR
     Indication: COVID-19
     Route: 048
     Dates: start: 20220520
  2. PDA Closure [Concomitant]
  3. IV Actemra every 4 weeks [Concomitant]
  4. VITAMIN D3 [Concomitant]
     Active Substance: CHOLECALCIFEROL
  5. CODEINE [Concomitant]
     Active Substance: CODEINE
  6. PREDNISONE [Concomitant]
     Active Substance: PREDNISONE
  7. OTC multivitamin [Concomitant]
  8. ASPIRIN [Concomitant]
     Active Substance: ASPIRIN

REACTIONS (5)
  - COVID-19 [None]
  - Fatigue [None]
  - Diarrhoea [None]
  - Taste disorder [None]
  - Sneezing [None]

NARRATIVE: CASE EVENT DATE: 20220521
